FAERS Safety Report 5084465-0 (Version None)
Quarter: 2006Q3

REPORT INFORMATION
  Report Type: 
  Country: None (occurrence: None)
  Receive Date: 20060816
  Receipt Date: 20060802
  Transmission Date: 20061208
  Serious: No
  Sender: FDA-Public Use
  Company Number: TPA2006A01264

PATIENT
  Age: 66 Year
  Sex: Male
  Weight: 74.8435 kg

DRUGS (10)
  1. ACTOS [Suspect]
     Indication: DIABETES MELLITUS NON-INSULIN-DEPENDENT
     Dosage: 30 MG, 1 IN 1 D, PER ORAL; 1 IN 1 D, PER ORAL
     Route: 048
     Dates: start: 20030701, end: 20060701
  2. ACTOS [Suspect]
     Indication: DIABETES MELLITUS NON-INSULIN-DEPENDENT
     Dosage: 30 MG, 1 IN 1 D, PER ORAL; 1 IN 1 D, PER ORAL
     Route: 048
     Dates: start: 20060701
  3. METFORMIN (METFORMIN) (500 MILLIGRAM) [Concomitant]
  4. PLAVIX [Concomitant]
  5. SIMVASTATIN [Concomitant]
  6. OXYBUTYNIN CHLORIDE [Concomitant]
  7. LISINOPRIL [Concomitant]
  8. HYDROCHLOROTHIAZIDE [Concomitant]
  9. SOMA [Concomitant]
  10. REMERON [Concomitant]

REACTIONS (3)
  - BLOOD GLUCOSE INCREASED [None]
  - POOR QUALITY DRUG ADMINISTERED [None]
  - SELF-MEDICATION [None]
